FAERS Safety Report 9934518 (Version 1)
Quarter: 2014Q1

REPORT INFORMATION
  Report Type: Report from Study
  Country: US (occurrence: US)
  Receive Date: 20140228
  Receipt Date: 20140228
  Transmission Date: 20141002
  Serious: Yes (Hospitalization)
  Sender: FDA-Public Use
  Company Number: US-ABBVIE-14P-163-1205647-00

PATIENT
  Age: 71 Year
  Sex: Female

DRUGS (12)
  1. HUMIRA [Suspect]
     Indication: CROHN^S DISEASE
     Dates: start: 20120725
  2. NADOLOL [Concomitant]
     Indication: HYPERTENSION
  3. HCTZ [Concomitant]
     Indication: HYPERTENSION
  4. POTASSIUM [Concomitant]
     Indication: PRODUCT USED FOR UNKNOWN INDICATION
     Dosage: 1 1/2 TEASPOON DAILY
  5. PLAQUENIL [Concomitant]
     Indication: SYSTEMIC LUPUS ERYTHEMATOSUS
  6. TRAMADOL [Concomitant]
     Indication: PRODUCT USED FOR UNKNOWN INDICATION
  7. PROTONIX [Concomitant]
     Indication: PRODUCT USED FOR UNKNOWN INDICATION
  8. MACROBID [Concomitant]
     Indication: BLADDER DISORDER
     Dosage: AT BEDTIME
  9. MACROBID [Concomitant]
     Indication: URINARY TRACT INFECTION
  10. AMBIEN [Concomitant]
     Indication: INSOMNIA
  11. L-THYROXINE [Concomitant]
     Indication: PRODUCT USED FOR UNKNOWN INDICATION
     Dosage: DOSE GETS ADJUSTED ACCORDING TO THYROID LEVELS
  12. LISINOPRIL [Concomitant]
     Indication: BLOOD PRESSURE

REACTIONS (5)
  - Adhesion [Recovering/Resolving]
  - Palpitations [Recovering/Resolving]
  - Tremor [Recovering/Resolving]
  - Feeling abnormal [Recovering/Resolving]
  - Heart rate irregular [Recovering/Resolving]
